FAERS Safety Report 8464051-2 (Version None)
Quarter: 2012Q2

REPORT INFORMATION
  Report Type: 
  Country: None (occurrence: None)
  Receive Date: 20120625
  Receipt Date: 20120619
  Transmission Date: 20120825
  Serious: Yes (Death, Hospitalization)
  Sender: FDA-Public Use
  Company Number: CA-JNJFOC-20120307368

PATIENT
  Sex: Male
  Weight: 107.5 kg

DRUGS (1)
  1. STELARA [Suspect]
     Indication: PSORIASIS
     Route: 058
     Dates: start: 20090501

REACTIONS (4)
  - CHRONIC HEPATIC FAILURE [None]
  - RENAL FAILURE [None]
  - MULTI-ORGAN FAILURE [None]
  - PNEUMONIA [None]
